FAERS Safety Report 7900957-8 (Version None)
Quarter: 2011Q4

REPORT INFORMATION
  Report Type: 
  Country: None (occurrence: None)
  Receive Date: 20111108
  Receipt Date: 20111028
  Transmission Date: 20120403
  Serious: Yes (Other)
  Sender: FDA-Public Use
  Company Number: US-BAYER-2011-105419

PATIENT
  Sex: Female

DRUGS (2)
  1. DROSPIRENONE AND ETHINYL ESTRADIOL [Suspect]
     Dosage: UNK
     Dates: start: 20100701, end: 20101201
  2. YAZ [Suspect]
     Dosage: UNK
     Dates: start: 20090606, end: 20100425

REACTIONS (2)
  - GALLBLADDER INJURY [None]
  - INJURY [None]
